FAERS Safety Report 26063353 (Version 3)
Quarter: 2025Q4

REPORT INFORMATION
  Report Type: Report from Study
  Country: US (occurrence: US)
  Receive Date: 20251119
  Receipt Date: 20251209
  Transmission Date: 20260118
  Serious: Yes (Hospitalization, Other)
  Sender: ABBVIE
  Company Number: US-ABBVIE-6554283

PATIENT
  Age: 77 Year
  Sex: Female
  Weight: 52 kg

DRUGS (10)
  1. UBRELVY [Suspect]
     Active Substance: UBROGEPANT
     Indication: Migraine
     Dosage: TIME INTERVAL: AS NECESSARY: FORM STRENGTH: 50 MILLIGRAM
     Route: 048
     Dates: start: 2022
  2. DIAZEPAM [Concomitant]
     Active Substance: DIAZEPAM
     Indication: Muscle spasms
  3. FAMOTIDINE [Concomitant]
     Active Substance: FAMOTIDINE
     Indication: Gastrointestinal disorder
  4. ESOMEPRAZOLE SODIUM [Concomitant]
     Active Substance: ESOMEPRAZOLE SODIUM
     Indication: Gastrointestinal disorder
  5. TIZANIDINE [Concomitant]
     Active Substance: TIZANIDINE
     Indication: Muscle spasms
  6. ALBUTEROL [Concomitant]
     Active Substance: ALBUTEROL
     Indication: Respiration abnormal
  7. GABAPENTIN [Concomitant]
     Active Substance: GABAPENTIN
     Indication: Muscle spasms
  8. EZETIMIBE [Concomitant]
     Active Substance: EZETIMIBE
     Indication: Blood cholesterol
  9. PANTOPRAZOLE [Concomitant]
     Active Substance: PANTOPRAZOLE
     Indication: Gastrointestinal disorder
  10. PROLIA [Concomitant]
     Active Substance: DENOSUMAB
     Indication: Osteoporosis

REACTIONS (13)
  - COVID-19 [Recovered/Resolved]
  - Blood cholesterol increased [Not Recovered/Not Resolved]
  - Pneumonia [Recovering/Resolving]
  - Weight decreased [Recovering/Resolving]
  - Ocular hyperaemia [Recovered/Resolved with Sequelae]
  - Taste disorder [Recovered/Resolved]
  - Headache [Recovered/Resolved]
  - Exophthalmos [Recovered/Resolved]
  - Intraocular pressure increased [Unknown]
  - Arteriovenous fistula [Recovering/Resolving]
  - Diplopia [Recovering/Resolving]
  - Blepharospasm [Not Recovered/Not Resolved]
  - Blood potassium decreased [Not Recovered/Not Resolved]

NARRATIVE: CASE EVENT DATE: 20240801
